FAERS Safety Report 4856378-8 (Version None)
Quarter: 2005Q4

REPORT INFORMATION
  Report Type: 
  Country: None (occurrence: None)
  Receive Date: 20051219
  Receipt Date: 20050211
  Transmission Date: 20060501
  Serious: No
  Sender: FDA-Public Use
  Company Number: US-GLAXOSMITHKLINE-A0545220A

PATIENT
  Age: 24 Year
  Sex: Male

DRUGS (1)
  1. EQUATE NTS 21MG [Suspect]
     Dates: end: 20050206

REACTIONS (7)
  - FEELING JITTERY [None]
  - HEART RATE INCREASED [None]
  - HYPERHIDROSIS [None]
  - HYPOAESTHESIA [None]
  - MUSCLE TIGHTNESS [None]
  - PAIN IN EXTREMITY [None]
  - PANIC ATTACK [None]
